FAERS Safety Report 9399397 (Version 1)
Quarter: 2013Q3

REPORT INFORMATION
  Report Type: Spontaneous
  Country: GB (occurrence: None)
  Receive Date: 20130710
  Receipt Date: 20130710
  Transmission Date: 20140515
  Serious: Yes (Death, Hospitalization)
  Sender: FDA-Public Use
  Company Number: AUR-APL-2013-05695

PATIENT
  Age: 84 Year
  Sex: Female

DRUGS (4)
  1. CIPROFLOXACIN [Suspect]
     Indication: CELLULITIS
     Dosage: 1000 MG (500 MG, 2 IN 1 D),ORAL
     Route: 048
  2. CIPROFLOXACIN [Suspect]
     Indication: LOCALISED INFECTION
     Dosage: 1000 MG (500 MG, 2 IN 1 D),ORAL
     Route: 048
  3. ENALAPRIL [Concomitant]
  4. FUROSEMIDE [Concomitant]

REACTIONS (6)
  - Diarrhoea [None]
  - Clostridium difficile infection [None]
  - Hypotension [None]
  - Septic shock [None]
  - Hypophagia [None]
  - Megacolon [None]
